FAERS Safety Report 15090553 (Version 1)
Quarter: 2018Q2

REPORT INFORMATION
  Report Type: Spontaneous
  Country: SG (occurrence: SG)
  Receive Date: 20180629
  Receipt Date: 20180629
  Transmission Date: 20180711
  Serious: Yes (Other)
  Sender: FDA-Public Use
  Company Number: SG-ARBOR PHARMACEUTICALS, LLC-SG-2018ARB000756

PATIENT
  Age: 6 Year
  Sex: Female

DRUGS (4)
  1. TRIPTORELIN ACETATE [Suspect]
     Active Substance: TRIPTORELIN ACETATE
     Indication: PRECOCIOUS PUBERTY
     Dosage: FULL DOSE (1 M)
     Route: 030
  2. TRIPTORELIN ACETATE [Suspect]
     Active Substance: TRIPTORELIN ACETATE
     Dosage: FULL DOSE (1 M)
     Route: 030
  3. TRIPTORELIN ACETATE [Suspect]
     Active Substance: TRIPTORELIN ACETATE
     Dosage: HALF DOSE (1M)
     Route: 030
  4. TRIPTODUR [Suspect]
     Active Substance: TRIPTORELIN
     Indication: PRECOCIOUS PUBERTY
     Dosage: UNK UNK, SINGLE
     Route: 030

REACTIONS (3)
  - Type I hypersensitivity [Recovered/Resolved]
  - Urticaria [Recovered/Resolved]
  - Injection site pain [Unknown]
